FAERS Safety Report 22842532 (Version 2)
Quarter: 2023Q4

REPORT INFORMATION
  Report Type: Spontaneous
  Country: IT (occurrence: IT)
  Receive Date: 20230821
  Receipt Date: 20231030
  Transmission Date: 20240109
  Serious: Yes (Hospitalization, Other)
  Sender: FDA-Public Use
  Company Number: IT-SA-2023SA248335

PATIENT
  Age: 54 Year
  Sex: Male

DRUGS (4)
  1. ENOXAPARIN SODIUM [Suspect]
     Active Substance: ENOXAPARIN SODIUM
     Indication: Deep vein thrombosis
     Dosage: 6000 IU, BID
  2. RITUXIMAB [Concomitant]
     Active Substance: RITUXIMAB
     Indication: Anti-neutrophil cytoplasmic antibody positive vasculitis
     Dosage: UNK
  3. RITUXIMAB [Concomitant]
     Active Substance: RITUXIMAB
     Indication: Renal vasculitis
  4. RITUXIMAB [Concomitant]
     Active Substance: RITUXIMAB
     Indication: Pulmonary vasculitis

REACTIONS (5)
  - Anticoagulant-related nephropathy [Recovering/Resolving]
  - Renal impairment [Recovering/Resolving]
  - Haematuria [Recovering/Resolving]
  - Renal tubular necrosis [Recovering/Resolving]
  - Glomerulonephritis rapidly progressive [Recovering/Resolving]
